FAERS Safety Report 4566198-X (Version None)
Quarter: 2005Q1

REPORT INFORMATION
  Report Type: 
  Country: None (occurrence: None)
  Receive Date: 20050110
  Receipt Date: 20050110
  Transmission Date: 20050727
  Serious: No
  Sender: FDA-Public Use
  Company Number: None

PATIENT
  Sex: Female
  Weight: 74.3899 kg

DRUGS (2)
  1. RESTORIL (GENERIC) [Suspect]
     Indication: INSOMNIA
     Dosage: ONE QHS
     Dates: start: 20020225
  2. RESTORIL (GENERIC) [Suspect]
     Indication: INSOMNIA
     Dosage: ONE QHS
     Dates: start: 20020226

REACTIONS (1)
  - NIGHTMARE [None]
